FAERS Safety Report 8836515 (Version 2)
Quarter: 2012Q4

REPORT INFORMATION
  Report Type: 
  Country: AU (occurrence: AU)
  Receive Date: 20121011
  Receipt Date: 20121127
  Transmission Date: 20130627
  Serious: Yes (Death, Hospitalization, Other)
  Sender: FDA-Public Use
  Company Number: AU-B.I. PHARMACEUTICALS,INC./RIDGEFIELD-2012-AU-01726AU

PATIENT
  Age: 83 None
  Sex: Female
  Weight: 80 kg

DRUGS (9)
  1. PRADAXA [Suspect]
     Indication: CEREBROVASCULAR ACCIDENT PROPHYLAXIS
     Dosage: 220 mg
     Dates: start: 20111011, end: 20121020
  2. PRADAXA [Suspect]
     Indication: ATRIAL FIBRILLATION
  3. METOPROLOL [Concomitant]
  4. PHYSIOTENS [Concomitant]
  5. GLICLAZIDE [Concomitant]
  6. RAMIPRIL [Concomitant]
  7. MIRTAZAPINE [Concomitant]
  8. NORSPAN [Concomitant]
     Route: 062
  9. CELECOXIB [Concomitant]

REACTIONS (3)
  - Thrombotic cerebral infarction [Fatal]
  - Renal failure acute [Recovered/Resolved]
  - Dehydration [Recovered/Resolved]
